FAERS Safety Report 9840894 (Version 2)
Quarter: 2014Q1

REPORT INFORMATION
  Report Type: Spontaneous
  Country: US (occurrence: US)
  Receive Date: 20140124
  Receipt Date: 20140128
  Transmission Date: 20141002
  Serious: Yes (Other)
  Sender: FDA-Public Use
  Company Number: US-DRREDDYS-USA/USA/14/0037360

PATIENT
  Age: 25 Year
  Sex: Female

DRUGS (2)
  1. ZENATANE [Suspect]
     Indication: ACNE
     Route: 065
     Dates: start: 20140117, end: 20140120
  2. YAZ [Concomitant]
     Indication: CONTRACEPTION
     Route: 065

REACTIONS (3)
  - Mood swings [Unknown]
  - Crying [Unknown]
  - Feeling abnormal [Unknown]
